APPROVED DRUG PRODUCT: ACYCLOVIR
Active Ingredient: ACYCLOVIR
Strength: 200MG/5ML
Dosage Form/Route: SUSPENSION;ORAL
Application: A217393 | Product #001 | TE Code: AB
Applicant: MSN LABORATORIES PRIVATE LTD
Approved: Mar 9, 2023 | RLD: No | RS: No | Type: RX